FAERS Safety Report 21143366 (Version 2)
Quarter: 2022Q3

REPORT INFORMATION
  Report Type: Spontaneous
  Country: US (occurrence: US)
  Receive Date: 20220728
  Receipt Date: 20220809
  Transmission Date: 20221026
  Serious: No
  Sender: FDA-Public Use
  Company Number: US-LUPIN PHARMACEUTICALS INC.-2022-09726

PATIENT
  Sex: Male
  Weight: 71.655 kg

DRUGS (3)
  1. BUPROPION HYDROCHLORIDE XL [Suspect]
     Active Substance: BUPROPION HYDROCHLORIDE
     Indication: Smoking cessation therapy
     Dosage: 300 MG, QD (1 TABLET PER DAY TO QUIT SMOKING)
     Route: 048
     Dates: start: 202205
  2. TRAMADOL [Suspect]
     Active Substance: TRAMADOL
     Indication: Product used for unknown indication
     Dosage: UNK
     Route: 065
  3. TYLENOL [Concomitant]
     Active Substance: ACETAMINOPHEN
     Indication: Product used for unknown indication
     Dosage: UNK
     Route: 065

REACTIONS (7)
  - Dizziness [Unknown]
  - Fear [Unknown]
  - Feeling abnormal [Unknown]
  - COVID-19 [Unknown]
  - Drug hypersensitivity [Unknown]
  - Drug screen false positive [Unknown]
  - Extra dose administered [Unknown]
